FAERS Safety Report 6655100-2 (Version None)
Quarter: 2010Q1

REPORT INFORMATION
  Report Type: 
  Country: None (occurrence: None)
  Receive Date: 20100329
  Receipt Date: 20100316
  Transmission Date: 20100710
  Serious: Yes (Life-Threatening, Hospitalization)
  Sender: FDA-Public Use
  Company Number: JP-JNJFOC-20100302114

PATIENT
  Sex: Male
  Weight: 62 kg

DRUGS (6)
  1. REMICADE [Suspect]
     Indication: CROHN'S DISEASE
     Dosage: TOTAL OF 2 INFUSIONS
     Route: 042
  2. REMICADE [Suspect]
     Route: 042
  3. IMURAN [Suspect]
     Indication: CROHN'S DISEASE
     Route: 048
  4. PENTASA [Concomitant]
     Indication: CROHN'S DISEASE
     Route: 048
  5. FLAGYL [Concomitant]
     Indication: CROHN'S DISEASE
     Route: 048
  6. LANSOPRAZOLE [Concomitant]
     Indication: CROHN'S DISEASE
     Route: 048

REACTIONS (2)
  - CARDIAC FAILURE [None]
  - CONGESTIVE CARDIOMYOPATHY [None]
